FAERS Safety Report 5995830-9 (Version None)
Quarter: 2008Q4

REPORT INFORMATION
  Report Type: 
  Country: None (occurrence: None)
  Receive Date: 20081212
  Receipt Date: 20081202
  Transmission Date: 20090506
  Serious: Yes (Hospitalization)
  Sender: FDA-Public Use
  Company Number: FR-PFIZER INC-2008152305

PATIENT

DRUGS (2)
  1. PREGABALIN [Suspect]
     Indication: NEURALGIA
     Dosage: 75 MG, 2X/DAY
     Dates: start: 20080512, end: 20080101
  2. FLUOXETINE HYDROCHLORIDE [Concomitant]
     Indication: DEPRESSION

REACTIONS (4)
  - MAJOR DEPRESSION [None]
  - MORBID THOUGHTS [None]
  - SUICIDAL IDEATION [None]
  - SUICIDE ATTEMPT [None]
